FAERS Safety Report 4587068-7 (Version None)
Quarter: 2005Q1

REPORT INFORMATION
  Report Type: 
  Country: None (occurrence: None)
  Receive Date: 20050214
  Receipt Date: 20050127
  Transmission Date: 20050727
  Serious: Yes (Hospitalization)
  Sender: FDA-Public Use
  Company Number: 2005PL000005

PATIENT
  Age: 50 Year
  Sex: Female

DRUGS (4)
  1. AZATHIOPRINE [Suspect]
     Indication: SYSTEMIC SCLEROSIS
     Dosage: 2 MG/KG; DAILY; ORAL
     Route: 048
  2. PREDNISONE [Concomitant]
  3. WARFARIN SODIUM [Concomitant]
  4. ILOPROST [Concomitant]

REACTIONS (18)
  - ABDOMINAL PAIN [None]
  - ANTITHROMBIN III DECREASED [None]
  - ASCITES [None]
  - BLOOD ALBUMIN DECREASED [None]
  - BONE MARROW DISORDER [None]
  - DRUG TOXICITY [None]
  - DYSPNOEA [None]
  - HAEMOLYSIS [None]
  - HEPATIC FIBROSIS [None]
  - HEPATIC STEATOSIS [None]
  - HYPOTENSION [None]
  - LIVER FUNCTION TEST ABNORMAL [None]
  - OEDEMA PERIPHERAL [None]
  - PANCYTOPENIA [None]
  - PERIPORTAL SINUS DILATATION [None]
  - TACHYCARDIA [None]
  - VENOOCCLUSIVE LIVER DISEASE [None]
  - WEIGHT INCREASED [None]
